FAERS Safety Report 8065453-9 (Version None)
Quarter: 2012Q1

REPORT INFORMATION
  Report Type: 
  Country: None (occurrence: None)
  Receive Date: 20120117
  Receipt Date: 20120103
  Transmission Date: 20120608
  Serious: Yes (Hospitalization)
  Sender: FDA-Public Use
  Company Number: 7104388

PATIENT
  Age: 72 Year
  Sex: Female

DRUGS (9)
  1. SEROPLEX (ESCITALOPRAM OXALATE) (ESCITALOPRAM) [Concomitant]
  2. BURINEX (BUMETANIDE) (1 MG) (BUMETANIDE) [Concomitant]
  3. EXELON (RIVASTIGMINE) (6 MG) (RIVASTIGMINE) [Concomitant]
  4. FOZITEC 20 MG (FOSINOPRIL) (FOSINOPRIL) [Concomitant]
  5. LEVOTHYROXINE SODIUM [Suspect]
     Indication: PRODUCT USED FOR UNKNOWN INDICATION
     Dosage: ORAL
     Route: 048
  6. NORFLOXACIN [Suspect]
     Indication: PRODUCT USED FOR UNKNOWN INDICATION
     Dosage: ORAL
     Route: 048
     Dates: start: 20110901, end: 20111004
  7. POTASSIUM CHLORIDE [Concomitant]
  8. OMEPRAZOLE [Concomitant]
  9. METFORMIN HCL [Concomitant]

REACTIONS (1)
  - DRUG RASH WITH EOSINOPHILIA AND SYSTEMIC SYMPTOMS [None]
